FAERS Safety Report 5717514-4 (Version None)
Quarter: 2008Q2

REPORT INFORMATION
  Report Type: 
  Country: None (occurrence: None)
  Receive Date: 20080425
  Receipt Date: 20080415
  Transmission Date: 20081010
  Serious: Yes (Hospitalization)
  Sender: FDA-Public Use
  Company Number: US-JNJFOC-20080404801

PATIENT
  Sex: Female
  Weight: 72.58 kg

DRUGS (4)
  1. DURAGESIC-100 [Suspect]
     Route: 062
  2. DURAGESIC-100 [Suspect]
     Route: 062
  3. DURAGESIC-100 [Suspect]
     Route: 062
  4. DURAGESIC-100 [Suspect]
     Indication: BACK PAIN
     Dosage: 1 X 25 UG/HR AND 1 X 100 UG/HR
     Route: 062

REACTIONS (7)
  - ARTHRITIS [None]
  - BACK INJURY [None]
  - BODY HEIGHT DECREASED [None]
  - INCORRECT DRUG ADMINISTRATION DURATION [None]
  - OVERDOSE [None]
  - PATELLA FRACTURE [None]
  - SHOULDER ARTHROPLASTY [None]
